FAERS Safety Report 7812614-7 (Version None)
Quarter: 2011Q4

REPORT INFORMATION
  Report Type: 
  Country: None (occurrence: None)
  Receive Date: 20111013
  Receipt Date: 20110720
  Transmission Date: 20120403
  Serious: No
  Sender: FDA-Public Use
  Company Number: US-NOVEN-11US002823

PATIENT
  Sex: Female
  Weight: 81.633 kg

DRUGS (3)
  1. LISINOPRIL [Concomitant]
     Indication: HYPERTENSION
     Dosage: UNK
  2. EYE DROPS [Concomitant]
     Indication: GLAUCOMA
     Dosage: UNK
  3. FENTANYL [Suspect]
     Indication: PAIN
     Dosage: 25 MCG; 1 PATCH Q3 DAYS
     Route: 062
     Dates: start: 20110701

REACTIONS (5)
  - CONSTIPATION [None]
  - INSOMNIA [None]
  - THIRST [None]
  - DRY MOUTH [None]
  - PRODUCT QUALITY ISSUE [None]
